FAERS Safety Report 19082747 (Version 1)
Quarter: 2021Q2

REPORT INFORMATION
  Report Type: Report from Study
  Country: US (occurrence: US)
  Receive Date: 20210401
  Receipt Date: 20210401
  Transmission Date: 20210717
  Serious: Yes (Other)
  Sender: FDA-Public Use
  Company Number: US-ROCHE-2798170

PATIENT
  Age: 70 Year
  Sex: Female
  Weight: 83.4 kg

DRUGS (3)
  1. OBINUTUZUMAB. [Suspect]
     Active Substance: OBINUTUZUMAB
     Indication: CHRONIC LYMPHOCYTIC LEUKAEMIA
     Dosage: 1000 MG IV ON DAY 8, CYCLE 1;  IV ON DAY 15, CYCLE 1; 1 IV ON DAY 1, CYCLE 2?6; 900 MG IV ON DAY 2,
     Route: 042
     Dates: start: 20201006
  2. IBRUTINIB [Suspect]
     Active Substance: IBRUTINIB
     Indication: CHRONIC LYMPHOCYTIC LEUKAEMIA
     Dosage: 420 MG PO QD ON DAYS 1?28, CYCLES 1?19?19/FEB/2021, LAST DATE OF ADMINISTRATION (940 MG)
     Route: 048
     Dates: start: 20201006
  3. VENETOCLAX. [Suspect]
     Active Substance: VENETOCLAX
     Indication: CHRONIC LYMPHOCYTIC LEUKAEMIA
     Dosage: 20 MG PO QD DAYS 1?7 CYCLE 3, 50 MG PO QD DAYS 8?14, CYCLE 3,100 MG PO QD DAYS 15?21, CYCLE 3,400 MG
     Route: 048
     Dates: start: 20201006

REACTIONS (1)
  - Stomatitis [Recovering/Resolving]

NARRATIVE: CASE EVENT DATE: 20210219
